FAERS Safety Report 10440656 (Version 3)
Quarter: 2014Q3

REPORT INFORMATION
  Report Type: Report from Study
  Country: MX (occurrence: MX)
  Receive Date: 20140909
  Receipt Date: 20140923
  Transmission Date: 20150326
  Serious: Yes (Other)
  Sender: FDA-Public Use
  Company Number: PHHY2013MX120727

PATIENT
  Age: 73 Year
  Sex: Female
  Weight: 41.4 kg

DRUGS (7)
  1. STALEVO [Suspect]
     Active Substance: CARBIDOPA\ENTACAPONE\LEVODOPA
     Dosage: UNK UKN, UNK (200/150/37.5 MG)
  2. ZYPREXA ZIDIS [Concomitant]
     Indication: ANXIETY
     Dosage: 0.5 UKN, QHS (HALF DAILY AT NIGHTS)
     Dates: start: 201406
  3. ENSURE [Concomitant]
     Active Substance: AMINO ACIDS\DEXTROSE\ELECTROLYTES NOS\SOYBEAN OIL\VITAMINS
     Indication: VITAMIN SUPPLEMENTATION
     Dosage: 1 UKN, BID
     Dates: start: 20130919
  4. STALEVO [Suspect]
     Active Substance: CARBIDOPA\ENTACAPONE\LEVODOPA
     Indication: PARKINSON^S DISEASE
     Dosage: 2 DF, DAILY
     Dates: start: 2012, end: 2013
  5. PARAMIX [Concomitant]
     Dosage: 2 UNK, UNK (FOR 5 DAYS)
     Dates: start: 20131011, end: 20131016
  6. STALEVO [Suspect]
     Active Substance: CARBIDOPA\ENTACAPONE\LEVODOPA
     Dosage: 2 DF, DAILY (TWO TABLETS OF 200 MG / 15 MG / 37.5 MG, DAILY)
     Route: 048
     Dates: start: 20140829, end: 20140903
  7. SERMION [Concomitant]
     Active Substance: NICERGOLINE
     Dosage: 1 UKN, QHS (BEFORE SLEEP)
     Dates: start: 20130919

REACTIONS (17)
  - Stress [Unknown]
  - Vomiting [Recovering/Resolving]
  - Decreased appetite [Recovered/Resolved]
  - Gastritis [Recovering/Resolving]
  - Distractibility [Not Recovered/Not Resolved]
  - Malaise [Recovered/Resolved]
  - Weight decreased [Recovered/Resolved]
  - Malnutrition [Not Recovered/Not Resolved]
  - Feeling abnormal [Recovered/Resolved]
  - Dizziness [Recovered/Resolved]
  - Tremor [Not Recovered/Not Resolved]
  - Incorrect dose administered [Not Recovered/Not Resolved]
  - Salivary hypersecretion [Recovering/Resolving]
  - Nausea [Recovering/Resolving]
  - Insomnia [Recovered/Resolved]
  - Weight increased [Not Recovered/Not Resolved]
  - Headache [Recovered/Resolved]

NARRATIVE: CASE EVENT DATE: 2012
